FAERS Safety Report 4301437-1 (Version None)
Quarter: 2004Q1

REPORT INFORMATION
  Report Type: 
  Country: None (occurrence: None)
  Receive Date: 20040219
  Receipt Date: 20040206
  Transmission Date: 20041129
  Serious: Yes (Hospitalization)
  Sender: FDA-Public Use
  Company Number: HQWYE856206FEB04

PATIENT
  Age: 87 Year
  Sex: Female

DRUGS (14)
  1. BISOPROLOL (BISOPROLOL, TABLET) [Suspect]
     Indication: ATRIAL FIBRILLATION
     Dosage: SEE IMAGE
     Route: 048
     Dates: start: 20030701, end: 20030701
  2. BISOPROLOL (BISOPROLOL, TABLET) [Suspect]
     Indication: ATRIAL FIBRILLATION
     Dosage: SEE IMAGE
     Route: 048
     Dates: start: 20030701
  3. DIGITOXIN TAB [Suspect]
     Indication: ATRIAL FIBRILLATION
     Dosage: SEE IMGE
     Route: 048
     Dates: end: 20030701
  4. DIGITOXIN TAB [Suspect]
     Indication: ATRIAL FIBRILLATION
     Dosage: SEE IMGE
     Route: 048
     Dates: start: 20030701
  5. HERPHONAL (TRIMIPRAMINE,) [Suspect]
     Indication: SLEEP DISORDER
     Dosage: 25 MG 1X PER 1 DAY ORAL
     Route: 048
     Dates: end: 20030722
  6. ACETYLSALICYLIC ACID SRT [Concomitant]
  7. THEOPHYLLINE [Concomitant]
  8. FERROUS SULFATE TAB [Concomitant]
  9. LISINOPRIL [Concomitant]
  10. ACETYLCYSTEINE [Concomitant]
  11. PREDNISOLONE [Concomitant]
  12. SPRIVA (TIOTROPIUM BROMIDE) [Concomitant]
  13. FUROSEMIDE [Concomitant]
  14. TORSEMIDE [Concomitant]

REACTIONS (11)
  - ARRHYTHMIA [None]
  - BLOOD AMYLASE DECREASED [None]
  - BLOOD GLUCOSE INCREASED [None]
  - BLOOD THYROID STIMULATING HORMONE DECREASED [None]
  - BRADYCARDIA [None]
  - C-REACTIVE PROTEIN INCREASED [None]
  - CARDIAC FAILURE [None]
  - DRUG INTERACTION [None]
  - DRUG LEVEL INCREASED [None]
  - OBSTRUCTIVE CHRONIC BRONCHITIS WITH ACUTE EXACERBATION [None]
  - PULMONARY HYPERTENSION [None]
